FAERS Safety Report 8781804 (Version 1)
Quarter: 2012Q4

REPORT INFORMATION
  Report Type: 
  Country: US (occurrence: US)
  Receive Date: 20120913
  Receipt Date: 20120913
  Transmission Date: 20130627
  Serious: No
  Sender: FDA-Public Use
  Company Number: US-009507513-2012SP013646

PATIENT

DRUGS (16)
  1. BOCEPREVIR [Suspect]
     Dosage: 800 mg, TID
     Route: 048
  2. BOCEPREVIR [Suspect]
     Dosage: UNK
  3. PEG-INTRON [Suspect]
     Dosage: 120 Microgram, UNK
     Route: 065
  4. PEG-INTRON [Suspect]
     Dosage: UNK UNK, Unknown
     Route: 065
     Dates: start: 20120518
  5. REBETOL [Suspect]
     Dosage: 2 DF, qam
     Route: 048
  6. REBETOL [Suspect]
     Dosage: 3 DF, qpm
     Route: 048
  7. REBETOL [Suspect]
     Dosage: UNK UNK, Unknown
     Route: 048
     Dates: start: 20120518
  8. AMLODIPINE [Concomitant]
     Dosage: 5 mg, Unknown
     Route: 065
  9. ADDERALL TABLETS [Concomitant]
     Dosage: 10 mg, Unknown
     Route: 065
  10. CHOLECALCIFEROL [Concomitant]
     Dosage: DOSE = 50000 UNT
     Route: 065
  11. ATENOLOL [Concomitant]
     Dosage: 25 mg, Unknown
     Route: 065
  12. OPANA [Concomitant]
     Dosage: ER(EXTENDED RELEASE)
     Route: 065
  13. LACTOSE [Concomitant]
     Dosage: UPDATE (05APR2012): LACTOSE FAST TAB ACT RELF
     Route: 065
  14. CALCIUM (UNSPECIFIED) [Concomitant]
     Dosage: CALCIUM 500 TAB+D
     Route: 065
  15. LACTULOSE [Concomitant]
     Dosage: LACTULOSE SOL, 10 GM/15
     Route: 065
  16. VITAMIN D (UNSPECIFIED) [Concomitant]
     Dosage: 50000 unit

REACTIONS (22)
  - Chest pain [Unknown]
  - Tremor [Unknown]
  - Constipation [Unknown]
  - Abdominal discomfort [Unknown]
  - Hypoaesthesia [Unknown]
  - Gingival bleeding [Unknown]
  - White blood cell count decreased [Unknown]
  - Tooth abscess [Unknown]
  - Oropharyngeal pain [Unknown]
  - Dehydration [Recovered/Resolved]
  - Confusional state [Recovered/Resolved]
  - Dehydration [Recovered/Resolved]
  - Hypokalaemia [Recovered/Resolved]
  - Electrolyte imbalance [Recovered/Resolved]
  - Pruritus [Unknown]
  - Weight decreased [Recovered/Resolved]
  - Nausea [Unknown]
  - Dry mouth [Unknown]
  - Rash [Unknown]
  - Alopecia [Unknown]
  - Dysgeusia [Unknown]
  - Anaemia [Unknown]
